FAERS Safety Report 8882004 (Version 1)
Quarter: 2012Q4

REPORT INFORMATION
  Report Type: 
  Country: ES (occurrence: ES)
  Receive Date: 20121101
  Receipt Date: 20121101
  Transmission Date: 20130627
  Serious: Yes (Life-Threatening, Hospitalization, Other)
  Sender: FDA-Public Use
  Company Number: PHHY2012ES098117

PATIENT
  Age: 82 Year
  Sex: Female

DRUGS (6)
  1. SINTROM [Suspect]
     Indication: ATRIAL FIBRILLATION
     Dosage: UNK UKN, UNK
     Dates: end: 20120402
  2. CITALOPRAM [Interacting]
     Indication: DEPRESSION
     Dosage: 20 mg, QD
     Route: 048
     Dates: end: 20120402
  3. OMEPRAZOL [Interacting]
     Indication: PROPHYLAXIS
     Dosage: 20 mg, QD
     Route: 048
  4. APROVEL [Concomitant]
     Dosage: 300 mg, QD
     Route: 048
     Dates: end: 20120402
  5. LIPLAT [Concomitant]
     Indication: HYPERLIPIDAEMIA
     Dosage: 20 mg, UNK
     Route: 048
     Dates: end: 20120402
  6. SUTRIL [Concomitant]
     Indication: HYPERTENSION
     Dates: end: 20120402

REACTIONS (5)
  - Cerebral haematoma [Recovering/Resolving]
  - Depressed level of consciousness [Unknown]
  - Blood pressure increased [Unknown]
  - Drug interaction [Unknown]
  - Blood glucose increased [Unknown]
